FAERS Safety Report 10463661 (Version 1)
Quarter: 2014Q3

REPORT INFORMATION
  Report Type: Spontaneous
  Country: GB (occurrence: GB)
  Receive Date: 20140919
  Receipt Date: 20140919
  Transmission Date: 20150326
  Serious: Yes (Hospitalization)
  Sender: FDA-Public Use
  Company Number: GB-TEVA-509031ISR

PATIENT
  Age: 41 Year
  Sex: Male
  Weight: 70 kg

DRUGS (12)
  1. AMOXICILLIN W/CLAVULANIC ACID [Suspect]
     Active Substance: AMOXICILLIN\CLAVULANIC ACID
     Indication: SKIN INFECTION
     Dosage: 1500 MILLIGRAM DAILY;
     Route: 048
     Dates: start: 20140828, end: 20140829
  2. TRAMADOL [Concomitant]
     Active Substance: TRAMADOL
     Indication: NEURALGIA
     Dosage: 200 MILLIGRAM DAILY;
  3. PARACETAMOL [Concomitant]
     Active Substance: ACETAMINOPHEN
  4. DIET SUPPLEMENT [Concomitant]
  5. OXYNORM [Concomitant]
     Active Substance: OXYCODONE HYDROCHLORIDE
     Indication: NEURALGIA
     Dosage: 5-10 MG AS NECESSARY.
  6. DALTEPARIN [Concomitant]
     Active Substance: DALTEPARIN
     Dates: start: 20140824
  7. MEROPENEM. [Concomitant]
     Active Substance: MEROPENEM
     Dosage: 2000 MILLIGRAM DAILY;
     Dates: start: 20140824, end: 20140829
  8. AMITRIPTYLIN [Concomitant]
     Active Substance: AMITRIPTYLINE
  9. LACTULOSE. [Concomitant]
     Active Substance: LACTULOSE
  10. VANCOMYCIN [Concomitant]
     Active Substance: VANCOMYCIN
     Dosage: 2 GRAM DAILY;
     Dates: start: 20140824, end: 20140829
  11. VITAMIN C [Concomitant]
     Active Substance: ASCORBIC ACID
     Dosage: HIGH DOSE.
     Dates: end: 20140829
  12. MELPHALAN [Concomitant]
     Active Substance: MELPHALAN
     Dosage: HIGH DOSE. AS A PART OF ISOLATED LIMB PERFUSION, MADE IN AN EXPERIENCE CENTRE.
     Dates: start: 20140821

REACTIONS (4)
  - Sepsis [Unknown]
  - Thrombosis [Unknown]
  - Hepatitis acute [Recovering/Resolving]
  - Drug-induced liver injury [Recovering/Resolving]

NARRATIVE: CASE EVENT DATE: 20140829
